FAERS Safety Report 24731202 (Version 1)
Quarter: 2024Q4

REPORT INFORMATION
  Report Type: Spontaneous
  Country: LB (occurrence: LB)
  Receive Date: 20241213
  Receipt Date: 20241213
  Transmission Date: 20250115
  Serious: Yes (Other)
  Sender: RANBAXY
  Company Number: LB-SUN PHARMACEUTICAL INDUSTRIES LTD-2024RR-484408

PATIENT
  Age: 29 Year
  Sex: Male

DRUGS (1)
  1. PAROXETINE [Suspect]
     Active Substance: PAROXETINE
     Indication: Generalised anxiety disorder
     Dosage: 20 MILLIGRAM, QD
     Route: 065

REACTIONS (3)
  - Rectal haemorrhage [Unknown]
  - Rectal discharge [Unknown]
  - Proctalgia [Unknown]
